FAERS Safety Report 8494645-X (Version None)
Quarter: 2012Q3

REPORT INFORMATION
  Report Type: 
  Country: None (occurrence: None)
  Receive Date: 20120709
  Receipt Date: 20120628
  Transmission Date: 20120928
  Serious: Yes (Other)
  Sender: FDA-Public Use
  Company Number: CA-JNJFOC-20120614733

PATIENT
  Sex: Male
  Weight: 50 kg

DRUGS (3)
  1. REMICADE [Suspect]
     Indication: CROHN'S DISEASE
     Dosage: INDUCTION DOSE
     Route: 042
  2. PREDNISONE [Concomitant]
     Dosage: TAPERING
     Route: 065
  3. IMURAN [Concomitant]
     Route: 065

REACTIONS (1)
  - TRANSFUSION [None]
